FAERS Safety Report 19877696 (Version 2)
Quarter: 2021Q4

REPORT INFORMATION
  Report Type: Spontaneous
  Country: US (occurrence: US)
  Receive Date: 20210923
  Receipt Date: 20211004
  Transmission Date: 20220303
  Serious: Yes (Other)
  Sender: FDA-Public Use
  Company Number: US-TEVA-2021-US-1955467

PATIENT
  Age: 79 Year
  Sex: Female

DRUGS (10)
  1. CLARITHROMYCIN [Suspect]
     Active Substance: CLARITHROMYCIN
     Indication: Mycobacterium avium complex infection
     Dosage: 1000 MILLIGRAM DAILY;
     Route: 048
     Dates: start: 201910
  2. CLARITHROMYCIN [Suspect]
     Active Substance: CLARITHROMYCIN
     Indication: Genitourinary tract infection
  3. ETHAMBUTOL [Suspect]
     Active Substance: ETHAMBUTOL HYDROCHLORIDE
     Indication: Mycobacterium avium complex infection
     Dosage: 1200 MILLIGRAM DAILY;
     Route: 048
     Dates: start: 201910
  4. ETHAMBUTOL [Suspect]
     Active Substance: ETHAMBUTOL HYDROCHLORIDE
     Indication: Genitourinary tract infection
  5. RIFAMPIN [Suspect]
     Active Substance: RIFAMPIN
     Indication: Mycobacterium avium complex infection
     Dosage: 600 MILLIGRAM DAILY;
     Route: 048
     Dates: start: 201910
  6. RIFAMPIN [Suspect]
     Active Substance: RIFAMPIN
     Indication: Genitourinary tract infection
  7. SILVER NITRATE [Suspect]
     Active Substance: SILVER NITRATE
     Indication: Candida infection
     Dosage: INSTILLATION ROUTE
     Route: 050
     Dates: start: 2019, end: 2019
  8. SILVER NITRATE [Suspect]
     Active Substance: SILVER NITRATE
     Indication: Genitourinary tract infection
  9. SILVER NITRATE [Suspect]
     Active Substance: SILVER NITRATE
     Indication: Cystitis
  10. SILVER NITRATE [Suspect]
     Active Substance: SILVER NITRATE
     Indication: Mycobacterium avium complex infection

REACTIONS (3)
  - Nausea [Unknown]
  - Bladder spasm [Unknown]
  - Gastrointestinal disorder [Unknown]

NARRATIVE: CASE EVENT DATE: 20190101
